FAERS Safety Report 7797847-0 (Version None)
Quarter: 2011Q4

REPORT INFORMATION
  Report Type: 
  Country: None (occurrence: None)
  Receive Date: 20111005
  Receipt Date: 20110929
  Transmission Date: 20120403
  Serious: Yes (Hospitalization)
  Sender: FDA-Public Use
  Company Number: US-ALEXION PHARMACEUTICALS INC.-A201101486

PATIENT
  Sex: Male

DRUGS (7)
  1. SPIRONOLACTONE [Concomitant]
     Dosage: UNK
     Route: 048
  2. FUROSEMIDE [Concomitant]
     Dosage: UNK
     Route: 048
  3. METOPROLOL TARTRATE [Concomitant]
     Dosage: UNK
     Route: 048
  4. WARFARIN SODIUM [Concomitant]
     Dosage: UNK
     Route: 048
  5. FOLIC ACID [Concomitant]
     Dosage: UNK
     Route: 048
  6. PROTONIX [Concomitant]
     Dosage: UNK
     Route: 048
  7. SOLIRIS [Suspect]
     Indication: PAROXYSMAL NOCTURNAL HAEMOGLOBINURIA
     Dosage: UNK, Q2W
     Route: 042

REACTIONS (1)
  - STAPHYLOCOCCAL INFECTION [None]
